FAERS Safety Report 14890286 (Version 4)
Quarter: 2019Q2

REPORT INFORMATION
  Report Type: Spontaneous
  Country: US (occurrence: US)
  Receive Date: 20180514
  Receipt Date: 20190625
  Transmission Date: 20190711
  Serious: Yes (Hospitalization)
  Sender: FDA-Public Use
  Company Number: US-PFIZER INC-2018193952

PATIENT
  Age: 75 Year
  Sex: Female
  Weight: 62 kg

DRUGS (7)
  1. IBRANCE [Suspect]
     Active Substance: PALBOCICLIB
     Indication: BREAST CANCER METASTATIC
     Dosage: 125 MG, CYCLIC (ONCE A DAY FOR 3 WEEKS AND OFF FOR 2 WEEKS)
     Route: 048
     Dates: start: 2017
  2. XGEVA [Suspect]
     Active Substance: DENOSUMAB
     Dosage: UNK (SHOT ONCE A MONTH)
     Dates: start: 2017, end: 2018
  3. IBRANCE [Suspect]
     Active Substance: PALBOCICLIB
     Dosage: 100 MG, DAILY
     Route: 048
     Dates: start: 20180501
  4. LEVOTHYROXINE. [Concomitant]
     Active Substance: LEVOTHYROXINE
     Dosage: 75 UG, 1X/DAY
     Route: 048
     Dates: start: 2013
  5. AFLIBERCEPT [Concomitant]
     Active Substance: AFLIBERCEPT
     Indication: MACULAR DEGENERATION
     Dosage: 1 MG, UNK, ^INJECTION TO LEFT EYE EVERY 2 MONTHS^
     Route: 031
     Dates: start: 2017
  6. XGEVA [Suspect]
     Active Substance: DENOSUMAB
     Indication: BONE CANCER
     Dosage: 1 MG, MONTHLY
     Dates: end: 2017
  7. FASLODEX [Concomitant]
     Active Substance: FULVESTRANT
     Indication: HORMONE SUPPRESSION THERAPY
     Dosage: 1 DF, MONTHLY, ^A SHOT IN EACH HIP ONCE A MONTH^
     Dates: start: 2017

REACTIONS (6)
  - Fatigue [Recovered/Resolved]
  - Weight decreased [Recovered/Resolved]
  - Oral infection [Recovered/Resolved]
  - Bone loss [Recovering/Resolving]
  - Stomatitis [Unknown]
  - Decreased appetite [Recovered/Resolved]

NARRATIVE: CASE EVENT DATE: 2017
